FAERS Safety Report 25641831 (Version 2)
Quarter: 2025Q3

REPORT INFORMATION
  Report Type: Spontaneous
  Country: JP (occurrence: JP)
  Receive Date: 20250804
  Receipt Date: 20250828
  Transmission Date: 20251020
  Serious: Yes (Death, Other)
  Sender: NOVARTIS
  Company Number: JP-002147023-NVSJ2025JP007594

PATIENT

DRUGS (1)
  1. FABHALTA [Suspect]
     Active Substance: IPTACOPAN HYDROCHLORIDE
     Indication: Paroxysmal nocturnal haemoglobinuria
     Route: 048

REACTIONS (4)
  - Hypoglycaemia [Fatal]
  - Hyperkalaemia [Fatal]
  - Paroxysmal nocturnal haemoglobinuria [Unknown]
  - Disease progression [Unknown]
